FAERS Safety Report 8127906-4 (Version None)
Quarter: 2012Q1

REPORT INFORMATION
  Report Type: 
  Country: None (occurrence: None)
  Receive Date: 20120210
  Receipt Date: 20120203
  Transmission Date: 20120608
  Serious: Yes (Hospitalization)
  Sender: FDA-Public Use
  Company Number: US-BAYER-2012-006347

PATIENT
  Age: 22 Year
  Sex: Female

DRUGS (1)
  1. YAZ [Suspect]
     Dosage: UNK
     Route: 048
     Dates: start: 20090401, end: 20091201

REACTIONS (4)
  - PULMONARY EMBOLISM [None]
  - PAIN [None]
  - EMOTIONAL DISTRESS [None]
  - INJURY [None]
